FAERS Safety Report 26176289 (Version 2)
Quarter: 2025Q4

REPORT INFORMATION
  Report Type: Spontaneous
  Country: JP (occurrence: JP)
  Receive Date: 20251218
  Receipt Date: 20251221
  Transmission Date: 20260117
  Serious: No
  Sender: APELLIS PHARMACEUTICALS
  Company Number: JP-BIOVITRUM-2025-JP-004601

PATIENT

DRUGS (1)
  1. EMPAVELI [Suspect]
     Active Substance: PEGCETACOPLAN
     Indication: Paroxysmal nocturnal haemoglobinuria
     Dosage: 1080.000MG
     Route: 058
     Dates: start: 20250328

REACTIONS (8)
  - Physical deconditioning [Unknown]
  - Haemoglobin decreased [Unknown]
  - Blood lactate dehydrogenase increased [Unknown]
  - Decreased appetite [Unknown]
  - Gastrointestinal sounds abnormal [Unknown]
  - Fatigue [Unknown]
  - Headache [Recovered/Resolved]
  - Anaemia [Unknown]

NARRATIVE: CASE EVENT DATE: 20250329
